FAERS Safety Report 14763093 (Version 2)
Quarter: 2018Q2

REPORT INFORMATION
  Report Type: Spontaneous
  Country: IT (occurrence: IT)
  Receive Date: 20180416
  Receipt Date: 20180416
  Transmission Date: 20180711
  Serious: Yes (Death, Life-Threatening, Hospitalization, Other)
  Sender: FDA-Public Use
  Company Number: PHHY2017IT202160

PATIENT
  Age: 52 Year
  Sex: Male

DRUGS (11)
  1. CICLOSPORIN [Suspect]
     Active Substance: CYCLOSPORINE
     Indication: IMMUNOSUPPRESSION
     Route: 065
  2. COLISTIN [Suspect]
     Active Substance: COLISTIN
     Route: 065
  3. OXYGEN. [Suspect]
     Active Substance: OXYGEN
     Indication: LIVER ABSCESS
  4. MYCOPHENOLATE MOFETIL. [Suspect]
     Active Substance: MYCOPHENOLATE MOFETIL
     Indication: IMMUNOSUPPRESSION
     Route: 065
  5. GENTAMICIN. [Suspect]
     Active Substance: GENTAMICIN
     Indication: LIVER ABSCESS
     Dosage: UNK
     Route: 065
  6. MEROPENEM. [Suspect]
     Active Substance: MEROPENEM
     Indication: LIVER ABSCESS
     Dosage: UNK
     Route: 065
  7. METHYLPREDNISOLONE. [Suspect]
     Active Substance: METHYLPREDNISOLONE
     Indication: IMMUNOSUPPRESSION
     Route: 065
  8. MEROPENEM. [Suspect]
     Active Substance: MEROPENEM
     Dosage: UNK
     Route: 065
  9. GENTAMICIN. [Suspect]
     Active Substance: GENTAMICIN
     Dosage: UNK
     Route: 065
  10. COLISTIN [Suspect]
     Active Substance: COLISTIN
     Indication: LIVER ABSCESS
     Dosage: UNK
     Route: 065
  11. OXYGEN. [Suspect]
     Active Substance: OXYGEN
     Dosage: HYPERBARIC OXYGEN
     Route: 065

REACTIONS (5)
  - Drug ineffective [Unknown]
  - Klebsiella infection [Fatal]
  - Liver abscess [Fatal]
  - Peritonitis [Fatal]
  - Septic shock [Fatal]

NARRATIVE: CASE EVENT DATE: 2011
